FAERS Safety Report 7751731-7 (Version None)
Quarter: 2011Q3

REPORT INFORMATION
  Report Type: 
  Country: None (occurrence: None)
  Receive Date: 20110915
  Receipt Date: 20110906
  Transmission Date: 20111222
  Serious: Yes (Hospitalization, Other)
  Sender: FDA-Public Use
  Company Number: US-BIOGENIDEC-2009BI002668

PATIENT
  Age: 29 Year
  Sex: Female

DRUGS (2)
  1. AVONEX [Suspect]
     Route: 030
     Dates: start: 20070518, end: 20081001
  2. AVONEX [Suspect]
     Indication: MULTIPLE SCLEROSIS
     Route: 030
     Dates: start: 20090116

REACTIONS (4)
  - CEREBRAL HAEMORRHAGE [None]
  - ARTERIOVENOUS MALFORMATION [None]
  - POST PROCEDURAL COMPLICATION [None]
  - MEMORY IMPAIRMENT [None]
